FAERS Safety Report 14153219 (Version 1)
Quarter: 2017Q4

REPORT INFORMATION
  Report Type: Report from Study
  Country: IR (occurrence: IR)
  Receive Date: 20171102
  Receipt Date: 20171102
  Transmission Date: 20180321
  Serious: Yes (Other)
  Sender: FDA-Public Use
  Company Number: IR-BAUSCH-BL-2017-030610

PATIENT
  Age: 43 Year
  Sex: Male

DRUGS (1)
  1. OPIUM. [Suspect]
     Active Substance: OPIUM
     Indication: PRODUCT USED FOR UNKNOWN INDICATION
     Route: 048

REACTIONS (9)
  - Toxicity to various agents [Recovering/Resolving]
  - Vomiting [Recovering/Resolving]
  - Abdominal pain [Recovered/Resolved]
  - Decreased appetite [Recovering/Resolving]
  - Hypoaesthesia [Recovering/Resolving]
  - Irritability [Recovering/Resolving]
  - Constipation [Recovering/Resolving]
  - Anaemia [Recovering/Resolving]
  - Drug dependence [Recovering/Resolving]
